FAERS Safety Report 19905568 (Version 1)
Quarter: 2021Q3

REPORT INFORMATION
  Report Type: Spontaneous
  Country: US (occurrence: US)
  Receive Date: 20210930
  Receipt Date: 20210930
  Transmission Date: 20211014
  Serious: Yes (Other)
  Sender: FDA-Public Use
  Company Number: None

PATIENT
  Age: 70 Year
  Sex: Female
  Weight: 88.9 kg

DRUGS (1)
  1. REVLIMID [Suspect]
     Active Substance: LENALIDOMIDE
     Indication: PLASMA CELL MYELOMA
     Dosage: ?          OTHER FREQUENCY:DAILY 21 DAYS ;?
     Route: 048
     Dates: start: 20210909

REACTIONS (2)
  - Chronic obstructive pulmonary disease [None]
  - Therapy cessation [None]

NARRATIVE: CASE EVENT DATE: 20210921
